FAERS Safety Report 11638365 (Version 1)
Quarter: 2015Q4

REPORT INFORMATION
  Report Type: Spontaneous
  Country: US (occurrence: US)
  Receive Date: 20151016
  Receipt Date: 20151016
  Transmission Date: 20160304
  Serious: No
  Sender: FDA-Public Use
  Company Number: US-ASTRAZENECA-2015SE99072

PATIENT
  Age: 24 Year
  Sex: Male

DRUGS (1)
  1. VIMOVO [Suspect]
     Active Substance: ESOMEPRAZOLE MAGNESIUM\NAPROXEN
     Indication: TENDONITIS
     Dosage: 500 MG/20 MG, 1 TABLET TWICE DAILY
     Route: 048
     Dates: end: 20150923

REACTIONS (4)
  - Abdominal pain upper [Recovered/Resolved]
  - Off label use [Unknown]
  - Product use issue [Unknown]
  - Abdominal discomfort [Recovered/Resolved]
